FAERS Safety Report 14794610 (Version 1)
Quarter: 2018Q2

REPORT INFORMATION
  Report Type: Report from Study
  Country: DE (occurrence: DE)
  Receive Date: 20180423
  Receipt Date: 20180423
  Transmission Date: 20180711
  Serious: Yes (Life-Threatening, Hospitalization)
  Sender: FDA-Public Use
  Company Number: DE-ROCHE-2112790

PATIENT
  Age: 76 Year
  Sex: Female
  Weight: 100 kg

DRUGS (4)
  1. BEVACIZUMAB. [Suspect]
     Active Substance: BEVACIZUMAB
     Indication: BREAST CANCER METASTATIC
     Dosage: FROM 17 NOV 2009 UNTIL 14 JAN 2010 IN COMBINATION WITH PACLITAXEL
     Route: 065
     Dates: start: 20091117, end: 20100204
  2. TAXOL [Concomitant]
     Active Substance: PACLITAXEL
     Indication: BREAST CANCER METASTATIC
     Dosage: 6 CYCLES
     Route: 065
     Dates: start: 20091117, end: 20100114
  3. LORAZEPAM. [Concomitant]
     Active Substance: LORAZEPAM
     Indication: DIARRHOEA
     Route: 048
     Dates: start: 20100204, end: 20100210
  4. RAMIPRIL. [Concomitant]
     Active Substance: RAMIPRIL
     Route: 065
     Dates: start: 20090712

REACTIONS (9)
  - Intestinal perforation [Recovered/Resolved]
  - Pneumonia [Recovered/Resolved]
  - Oedema [Recovered/Resolved]
  - Pneumothorax [Recovered/Resolved]
  - Impaired healing [Not Recovered/Not Resolved]
  - Diarrhoea [Recovered/Resolved]
  - Haemoglobin abnormal [Unknown]
  - Gastrointestinal infection [Recovered/Resolved]
  - Impaired healing [Recovered/Resolved]

NARRATIVE: CASE EVENT DATE: 20091126
